FAERS Safety Report 8332010-6 (Version None)
Quarter: 2012Q2

REPORT INFORMATION
  Report Type: 
  Country: None (occurrence: None)
  Receive Date: 20120502
  Receipt Date: 20120426
  Transmission Date: 20120825
  Serious: No
  Sender: FDA-Public Use
  Company Number: US-AMGEN-USASP2011043370

PATIENT
  Age: 60 Year
  Sex: Female

DRUGS (4)
  1. ENBREL [Suspect]
     Indication: PSORIASIS
     Dosage: 50 MG, QWK
     Dates: start: 20110711
  2. TREXALL [Concomitant]
     Dosage: 1 ML, QWK
     Dates: start: 20100928
  3. ENBREL [Suspect]
     Indication: RHEUMATOID ARTHRITIS
  4. ENBREL [Suspect]
     Indication: PSORIATIC ARTHROPATHY

REACTIONS (9)
  - INJECTION SITE PRURITUS [None]
  - INJECTION SITE REACTION [None]
  - OSTEOARTHRITIS [None]
  - PSORIATIC ARTHROPATHY [None]
  - INJECTION SITE PAIN [None]
  - INJECTION SITE SWELLING [None]
  - DRUG INEFFECTIVE [None]
  - INJECTION SITE HAEMATOMA [None]
  - INJECTION SITE ERYTHEMA [None]
